FAERS Safety Report 25257536 (Version 2)
Quarter: 2025Q2

REPORT INFORMATION
  Report Type: Spontaneous
  Country: US (occurrence: US)
  Receive Date: 20250430
  Receipt Date: 20250515
  Transmission Date: 20250716
  Serious: No
  Sender: DR REDDYS
  Company Number: None

PATIENT
  Age: 47 Year
  Sex: Male

DRUGS (5)
  1. HEPARIN [Suspect]
     Active Substance: HEPARIN SODIUM
     Indication: Pulmonary hypertension
  2. RIVAROXABAN [Suspect]
     Active Substance: RIVAROXABAN
     Indication: Pulmonary embolism
  3. RIVAROXABAN [Suspect]
     Active Substance: RIVAROXABAN
     Indication: Double heterozygous sickling disorders
  4. DOBUTAMINE [Concomitant]
     Active Substance: DOBUTAMINE HYDROCHLORIDE
     Indication: Pulmonary hypertension
  5. ACETYLCYSTEINE [Concomitant]
     Active Substance: ACETYLCYSTEINE
     Indication: Evidence based treatment

REACTIONS (2)
  - International normalised ratio increased [Recovering/Resolving]
  - Product use in unapproved indication [Unknown]
